FAERS Safety Report 9850490 (Version 1)
Quarter: 2014Q1

REPORT INFORMATION
  Report Type: Spontaneous
  Country: US (occurrence: US)
  Receive Date: 20140128
  Receipt Date: 20140128
  Transmission Date: 20141002
  Serious: Yes (Hospitalization, Other)
  Sender: FDA-Public Use
  Company Number: US-PFIZER INC-2014022732

PATIENT
  Age: 32 Year
  Sex: Female

DRUGS (8)
  1. SULFAMETHOXAZOLE/TRIMETHOPRIM [Suspect]
     Indication: PROPHYLAXIS
     Dosage: UNK
  2. CARBENICILLIN [Suspect]
     Indication: LEUKAEMIA CUTIS
     Dosage: UNK
     Route: 042
  3. TICARCILLIN [Suspect]
     Indication: LEUKAEMIA CUTIS
     Dosage: UNK
  4. ALLOPURINOL [Concomitant]
     Dosage: UNK
  5. CYTOSINE ARABINOSIDE [Concomitant]
     Indication: ACUTE LEUKAEMIA
     Dosage: (100 MG/M2 ) ON DAYS 1 THROUGH 7
  6. DOXORUBICIN [Concomitant]
     Indication: ACUTE LEUKAEMIA
     Dosage: DOXORUBICIN (35 MG/M2 ) ON DAYS 1 THROUGH 3
     Route: 042
  7. GENTAMICIN [Concomitant]
     Dosage: UNK
     Route: 042
  8. CEPHALOTHIN [Concomitant]
     Dosage: UNK

REACTIONS (2)
  - Pseudomembranous colitis [Not Recovered/Not Resolved]
  - Megacolon [Not Recovered/Not Resolved]
